FAERS Safety Report 19322219 (Version 1)
Quarter: 2021Q2

REPORT INFORMATION
  Report Type: Spontaneous
  Country: JP (occurrence: JP)
  Receive Date: 20210528
  Receipt Date: 20210528
  Transmission Date: 20210717
  Serious: Yes (Hospitalization, Other)
  Sender: FDA-Public Use
  Company Number: JP-AUROBINDO-AUR-APL-2021-021478

PATIENT
  Age: 55 Year
  Sex: Male

DRUGS (13)
  1. BUSULFAN. [Suspect]
     Active Substance: BUSULFAN
     Dosage: 3.1 MILLIGRAM/KILOGRAM, 3.1 MG/KG OF BUSULFAN INTRAVENOUSLY AS A THERAPEUTIC DOSE FOR 4 DAYS
     Route: 042
  2. FILGRASTIM [Suspect]
     Active Substance: FILGRASTIM
     Indication: AUTOLOGOUS HAEMATOPOIETIC STEM CELL TRANSPLANT
     Dosage: 400 MICROGRAM/SQ. METER, ONCE A DAY, 400 MICROGRAM PER SQUQRE METER DAILY
     Route: 065
  3. GEMCITABINE. [Suspect]
     Active Substance: GEMCITABINE
     Indication: DIFFUSE LARGE B-CELL LYMPHOMA
     Dosage: UNK
     Route: 065
  4. BUSULFAN. [Suspect]
     Active Substance: BUSULFAN
     Indication: AUTOLOGOUS HAEMATOPOIETIC STEM CELL TRANSPLANT
     Dosage: 3.1 MILLIGRAM/KILOGRAM,3.1 MG/KG, DID NOT CHANGE THE DOSE IN SUBSEQUENT ADMINISTRATIONS
     Route: 042
  5. DEXAMETHASONE. [Suspect]
     Active Substance: DEXAMETHASONE
     Indication: DIFFUSE LARGE B-CELL LYMPHOMA
     Dosage: CHASER THERAPY: 33 MG/BODY ON DAY 2, 4 AND 5
     Route: 042
  6. MELPHALAN. [Suspect]
     Active Substance: MELPHALAN
     Indication: AUTOLOGOUS HAEMATOPOIETIC STEM CELL TRANSPLANT
     Dosage: 140 MILLIGRAM/SQ. METER
     Route: 065
  7. RITUXIMAB. [Suspect]
     Active Substance: RITUXIMAB
     Indication: DIFFUSE LARGE B-CELL LYMPHOMA
     Dosage: 375 MILLIGRAM/SQ. METER
     Route: 042
  8. BUSULFAN. [Suspect]
     Active Substance: BUSULFAN
     Dosage: 0.8 MILLIGRAM/SQ. METER
     Route: 042
  9. ETOPOSIDE. [Suspect]
     Active Substance: ETOPOSIDE
     Indication: DIFFUSE LARGE B-CELL LYMPHOMA
     Dosage: 50 MILLIGRAM/KILOGRAM, 50 MG/M2 (CHASER THERAPY: 50 MG/M2 ON DAY 2, 3 AND 4
     Route: 042
  10. CARBOPLATIN. [Suspect]
     Active Substance: CARBOPLATIN
     Indication: DIFFUSE LARGE B-CELL LYMPHOMA
     Dosage: UNK
     Route: 065
  11. CYCLOPHOSPHAMIDE. [Suspect]
     Active Substance: CYCLOPHOSPHAMIDE
     Indication: DIFFUSE LARGE B-CELL LYMPHOMA
     Dosage: 600 MILLIGRAM/SQ. METER
     Route: 042
  12. CYTARABINE. [Suspect]
     Active Substance: CYTARABINE
     Indication: DIFFUSE LARGE B-CELL LYMPHOMA
     Dosage: 1000 MILLIGRAM/SQ. METER
     Route: 065
  13. PLERIXAFOR [Suspect]
     Active Substance: PLERIXAFOR
     Indication: AUTOLOGOUS HAEMATOPOIETIC STEM CELL TRANSPLANT
     Dosage: 0.24 MILLIGRAM/KILOGRAM
     Route: 065

REACTIONS (7)
  - Febrile neutropenia [Recovering/Resolving]
  - Ascites [Unknown]
  - Thrombocytopenia [Unknown]
  - Anaemia [Unknown]
  - Pleural effusion [Unknown]
  - Diarrhoea [Recovering/Resolving]
  - Neutropenia [Unknown]
